FAERS Safety Report 9544203 (Version 1)
Quarter: 2013Q3

REPORT INFORMATION
  Report Type: Spontaneous
  Country: US (occurrence: US)
  Receive Date: 20130923
  Receipt Date: 20130923
  Transmission Date: 20140515
  Serious: No
  Sender: FDA-Public Use
  Company Number: US-ASTRAZENECA-2013SE62710

PATIENT
  Age: 75 Year
  Sex: Female

DRUGS (1)
  1. ZESTRIL [Suspect]
     Route: 048

REACTIONS (5)
  - Dysphonia [Unknown]
  - Pharyngeal inflammation [Unknown]
  - Musculoskeletal chest pain [Unknown]
  - Stress urinary incontinence [Unknown]
  - Cough [Unknown]
